FAERS Safety Report 25612924 (Version 1)
Quarter: 2025Q3

REPORT INFORMATION
  Report Type: Spontaneous
  Country: US (occurrence: None)
  Receive Date: 20250728
  Receipt Date: 20250728
  Transmission Date: 20251021
  Serious: Yes (Hospitalization)
  Sender: FDA-CTU
  Company Number: None

PATIENT
  Age: 34 Year

DRUGS (2)
  1. AMBRISENTAN [Suspect]
     Active Substance: AMBRISENTAN
     Indication: Abdominal pain
     Route: 048
  2. AMBRISENTAN [Suspect]
     Active Substance: AMBRISENTAN
     Indication: Pelvic pain

REACTIONS (1)
  - Hospitalisation [None]
